FAERS Safety Report 6201357-1 (Version None)
Quarter: 2009Q2

REPORT INFORMATION
  Report Type: 
  Country: None (occurrence: None)
  Receive Date: 20090526
  Receipt Date: 20090518
  Transmission Date: 20091009
  Serious: Yes (Death, Other)
  Sender: FDA-Public Use
  Company Number: PHHY2009TN19182

PATIENT
  Age: 30 Year

DRUGS (7)
  1. CYCLOSPORINE [Suspect]
     Indication: STEM CELL TRANSPLANT
     Dosage: 3 MG/KG/DAY
     Route: 042
  2. METHOTREXATE [Suspect]
     Indication: STEM CELL TRANSPLANT
     Dosage: 15 MG/M^2
  3. METHOTREXATE [Suspect]
     Indication: PROPHYLAXIS AGAINST GRAFT VERSUS HOST DISEASE
     Dosage: 10 MG/M^2
  4. CYCLOPHOSPHAMIDE [Suspect]
     Indication: APLASTIC ANAEMIA
     Dosage: 50 MG/KG/DAY
  5. ANTI-THYMOCYTE GLOBULIN NOS [Concomitant]
     Indication: APLASTIC ANAEMIA
     Dosage: 30 MG/KG/DAY
  6. BUSILVEX [Concomitant]
  7. ACYCLOVIR SODIUM [Concomitant]
     Indication: ANTIVIRAL PROPHYLAXIS
     Dosage: 500 MG/M2/8H.

REACTIONS (6)
  - CYSTITIS HAEMORRHAGIC [None]
  - CYTOMEGALOVIRUS INFECTION [None]
  - GRAFT VERSUS HOST DISEASE [None]
  - HISTIOCYTOSIS HAEMATOPHAGIC [None]
  - MULTI-ORGAN FAILURE [None]
  - TRANSPLANT REJECTION [None]
